FAERS Safety Report 6192779-6 (Version None)
Quarter: 2009Q2

REPORT INFORMATION
  Report Type: 
  Country: None (occurrence: None)
  Receive Date: 20090514
  Receipt Date: 20090508
  Transmission Date: 20091009
  Serious: Yes (Death, Hospitalization, Other)
  Sender: FDA-Public Use
  Company Number: 2009US001523

PATIENT
  Age: 50 Year
  Sex: Male

DRUGS (3)
  1. PROGRAF [Suspect]
     Indication: STEM CELL TRANSPLANT
  2. CAMPATH [Concomitant]
  3. METHOTREXATE [Concomitant]

REACTIONS (17)
  - ASCITES [None]
  - BACTERIAL SEPSIS [None]
  - BLOOD COUNT ABNORMAL [None]
  - CALCULUS URINARY [None]
  - COLITIS [None]
  - CYSTITIS HAEMORRHAGIC [None]
  - CYTOMEGALOVIRUS VIRAEMIA [None]
  - HAEMODIALYSIS [None]
  - HEPATIC NECROSIS [None]
  - HEPATORENAL SYNDROME [None]
  - HYDRONEPHROSIS [None]
  - NEPHRITIS [None]
  - POLYOMAVIRUS-ASSOCIATED NEPHROPATHY [None]
  - PSEUDOMONAL SEPSIS [None]
  - RENAL FAILURE CHRONIC [None]
  - THROMBOCYTOPENIA [None]
  - THROMBOTIC MICROANGIOPATHY [None]
